FAERS Safety Report 20585092 (Version 2)
Quarter: 2022Q1

REPORT INFORMATION
  Report Type: Spontaneous
  Country: BE (occurrence: BE)
  Receive Date: 20220311
  Receipt Date: 20220318
  Transmission Date: 20220424
  Serious: Yes (Other)
  Sender: FDA-Public Use
  Company Number: BE-SEATTLE GENETICS-2022SGN02235

PATIENT
  Age: 71 Year
  Sex: Female

DRUGS (1)
  1. ADCETRIS [Suspect]
     Active Substance: BRENTUXIMAB VEDOTIN
     Indication: Hodgkin^s disease
     Route: 065

REACTIONS (2)
  - Vogt-Koyanagi-Harada disease [Unknown]
  - Neuropathy peripheral [Unknown]
